FAERS Safety Report 4987888-0 (Version None)
Quarter: 2006Q2

REPORT INFORMATION
  Report Type: 
  Country: None (occurrence: None)
  Receive Date: 20060424
  Receipt Date: 20060407
  Transmission Date: 20061013
  Serious: Yes (Other)
  Sender: FDA-Public Use
  Company Number: DE200604001334

PATIENT
  Age: 40 Year
  Sex: Female
  Weight: 70 kg

DRUGS (4)
  1. CYMBALTA [Suspect]
     Dosage: 4800 MG, ORAL
     Route: 048
  2. ESCITALOPRAM OXALATE [Concomitant]
  3. RISPERIDONE [Concomitant]
  4. TRIMIPRAMINE MALEATE [Concomitant]

REACTIONS (6)
  - ACIDOSIS [None]
  - BOWEL SOUNDS ABNORMAL [None]
  - CONVULSION [None]
  - FATIGUE [None]
  - MULTIPLE DRUG OVERDOSE INTENTIONAL [None]
  - SUICIDE ATTEMPT [None]
